FAERS Safety Report 6500353-4 (Version None)
Quarter: 2009Q4

REPORT INFORMATION
  Report Type: 
  Country: None (occurrence: None)
  Receive Date: 20091216
  Receipt Date: 20091204
  Transmission Date: 20100525
  Serious: Yes (Hospitalization)
  Sender: FDA-Public Use
  Company Number: US-ELI_LILLY_AND_COMPANY-US200912001500

PATIENT
  Age: 24 Year
  Sex: Male

DRUGS (8)
  1. ZYPREXA [Suspect]
     Indication: SCHIZOPHRENIA
     Dosage: 5 MG, UNK
  2. ZYPREXA [Suspect]
     Dosage: 10 MG, UNK
  3. ZYPREXA [Suspect]
     Dosage: 15 MG, UNK
  4. STRATTERA [Suspect]
     Dosage: 80 MG, EACH MORNING
  5. VALTREX [Concomitant]
     Dosage: 1 D/F, UNK
  6. TRAZODONE HCL [Concomitant]
     Dosage: 1 D/F, UNK
  7. NEURONTIN [Concomitant]
     Dosage: 1 D/F, UNK
  8. DEPAKOTE [Concomitant]
     Dosage: 1 D/F, UNK

REACTIONS (2)
  - DRUG INEFFECTIVE [None]
  - HOSPITALISATION [None]
